FAERS Safety Report 18868143 (Version 1)
Quarter: 2021Q1

REPORT INFORMATION
  Report Type: Spontaneous
  Country: PT (occurrence: PT)
  Receive Date: 20210209
  Receipt Date: 20210209
  Transmission Date: 20210420
  Serious: Yes (Hospitalization)
  Sender: FDA-Public Use
  Company Number: PT-GILEAD-2021-0516476

PATIENT
  Age: 77 Year
  Sex: Male

DRUGS (19)
  1. VEKLURY [Suspect]
     Active Substance: REMDESIVIR
     Indication: COVID-19 PNEUMONIA
     Dosage: D1 200 MG, D2?D5 100 MG
     Route: 042
     Dates: start: 20210117, end: 20210119
  2. AMIODARONE [Concomitant]
     Active Substance: AMIODARONE
  3. PIPERACILINA + TAZOBACTAM [Concomitant]
     Active Substance: PIPERACILLIN SODIUM\TAZOBACTAM SODIUM
  4. DOMPERIDONE [Concomitant]
     Active Substance: DOMPERIDONE
     Dosage: 30 MG
  5. MORPHINE [Concomitant]
     Active Substance: MORPHINE
     Dosage: 20 MG
  6. QUETIAPINE. [Concomitant]
     Active Substance: QUETIAPINE
  7. INSULIN HUMAN [Concomitant]
     Active Substance: INSULIN HUMAN
  8. ENOXAPARIN SODIUM. [Concomitant]
     Active Substance: ENOXAPARIN SODIUM
     Route: 058
  9. VANCOMYCIN [Concomitant]
     Active Substance: VANCOMYCIN
  10. AMOXICILINA + ACIDO CLAVULONICO [Concomitant]
     Active Substance: AMOXICILLIN\CLAVULANATE POTASSIUM
  11. PANTOPRAZOLE [Concomitant]
     Active Substance: PANTOPRAZOLE
  12. ERYTHROMYCIN. [Concomitant]
     Active Substance: ERYTHROMYCIN
     Dosage: 1000 MG
  13. SALBUTAMOL [Concomitant]
     Active Substance: ALBUTEROL
  14. BISOPROLOL [Concomitant]
     Active Substance: BISOPROLOL
  15. PROPOFOL. [Concomitant]
     Active Substance: PROPOFOL
  16. CLARITHROMYCIN. [Concomitant]
     Active Substance: CLARITHROMYCIN
  17. BUDESONIDE. [Concomitant]
     Active Substance: BUDESONIDE
  18. METOCLOPRAMIDE. [Concomitant]
     Active Substance: METOCLOPRAMIDE
  19. IPRATROPIUM BROMIDE. [Concomitant]
     Active Substance: IPRATROPIUM BROMIDE

REACTIONS (1)
  - Renal impairment [Recovering/Resolving]

NARRATIVE: CASE EVENT DATE: 20210119
